FAERS Safety Report 24405547 (Version 1)
Quarter: 2024Q4

REPORT INFORMATION
  Report Type: Spontaneous
  Country: CZ (occurrence: CZ)
  Receive Date: 20241007
  Receipt Date: 20241007
  Transmission Date: 20250115
  Serious: Yes (Disabling, Other)
  Sender: MYLAN
  Company Number: None

PATIENT
  Age: 51 Year
  Sex: Male
  Weight: 78 kg

DRUGS (1)
  1. SILDENAFIL [Suspect]
     Active Substance: SILDENAFIL
     Indication: Product used for unknown indication
     Dosage: COMBINATION WITH THE DR. MAX EYEWASH, SINGLE-USE (FILM-COATED TABLET)
     Route: 065

REACTIONS (3)
  - Corneal defect [Unknown]
  - Visual impairment [Unknown]
  - Drug-device interaction [Unknown]
